FAERS Safety Report 22355833 (Version 1)
Quarter: 2023Q2

REPORT INFORMATION
  Report Type: Spontaneous
  Country: EE (occurrence: EE)
  Receive Date: 20230523
  Receipt Date: 20230523
  Transmission Date: 20230721
  Serious: Yes (Hospitalization, Other)
  Sender: FDA-Public Use
  Company Number: None

PATIENT
  Age: 23 Year
  Sex: Female
  Weight: 95 kg

DRUGS (1)
  1. NUVARING [Suspect]
     Active Substance: ETHINYL ESTRADIOL\ETONOGESTREL
     Indication: Contraception
     Dosage: 1 RING, NUVARING 120/15 MICROGRAMS/24 HRS VAGINAL THERAPY
     Route: 067
     Dates: start: 20210716, end: 202304

REACTIONS (2)
  - Pregnancy with contraceptive device [Recovered/Resolved]
  - Device ineffective [Recovered/Resolved]

NARRATIVE: CASE EVENT DATE: 20230426
